FAERS Safety Report 8572775-1 (Version None)
Quarter: 2012Q3

REPORT INFORMATION
  Report Type: 
  Country: None (occurrence: None)
  Receive Date: 20120806
  Receipt Date: 20120724
  Transmission Date: 20120928
  Serious: Yes (Other)
  Sender: FDA-Public Use
  Company Number: PT-009507513-1206USA05086

PATIENT

DRUGS (4)
  1. EZETIMIBE [Concomitant]
  2. ALENDRONATE SODIUM [Suspect]
     Indication: OSTEOPOROSIS
     Dosage: 2800 UNK, UNK
     Route: 048
     Dates: start: 20060101, end: 20100101
  3. CALCIUM (UNSPECIFIED) [Concomitant]
  4. ALENDRONATE SODIUM [Suspect]
     Indication: OSTEOPENIA
     Dosage: 5600 UNK, UNK
     Route: 048
     Dates: start: 20100101

REACTIONS (1)
  - RIB FRACTURE [None]
